FAERS Safety Report 6701204-5 (Version None)
Quarter: 2010Q2

REPORT INFORMATION
  Report Type: 
  Country: None (occurrence: None)
  Receive Date: 20100428
  Receipt Date: 20100419
  Transmission Date: 20101027
  Serious: Yes (Other)
  Sender: FDA-Public Use
  Company Number: US-ABBOTT-10P-163-0640196-00

PATIENT
  Sex: Female

DRUGS (7)
  1. HUMIRA [Suspect]
     Indication: CROHN'S DISEASE
     Route: 058
  2. HUMIRA [Suspect]
     Route: 058
  3. HUMIRA [Suspect]
     Route: 058
  4. HUMIRA [Suspect]
     Route: 058
  5. PENTASA [Concomitant]
     Indication: CROHN'S DISEASE
  6. EPIDURAL [Concomitant]
     Indication: LABOUR PAIN
     Dates: start: 20090601, end: 20090601
  7. UNKNOWN ANSETHETIC [Concomitant]
     Indication: CAESAREAN SECTION
     Dosage: UNKNOWN DOSE
     Dates: start: 20090601, end: 20090601

REACTIONS (5)
  - ARRESTED LABOUR [None]
  - CAESAREAN SECTION [None]
  - CROHN'S DISEASE [None]
  - NAUSEA [None]
  - ORAL FUNGAL INFECTION [None]
